FAERS Safety Report 7148922-5 (Version None)
Quarter: 2010Q4

REPORT INFORMATION
  Report Type: 
  Country: None (occurrence: None)
  Receive Date: 20101209
  Receipt Date: 20101206
  Transmission Date: 20110411
  Serious: Yes (Other)
  Sender: FDA-Public Use
  Company Number: A0892877A

PATIENT
  Age: 42 Year
  Sex: Female

DRUGS (1)
  1. PROMACTA [Suspect]
     Dosage: 50MG PER DAY
     Dates: end: 20101021

REACTIONS (3)
  - DISEASE PROGRESSION [None]
  - DRUG INEFFECTIVE [None]
  - HAEMATOLOGICAL MALIGNANCY [None]
